FAERS Safety Report 8407899 (Version 2)
Quarter: 2013Q4

REPORT INFORMATION
  Report Type: Spontaneous
  Country: US (occurrence: US)
  Receive Date: 20120215
  Receipt Date: 20131024
  Transmission Date: 20140711
  Serious: Yes (Other)
  Sender: FDA-Public Use
  Company Number: US-ROCHE-793897

PATIENT
  Age: 21 Year
  Sex: Male
  Weight: 95.34 kg

DRUGS (3)
  1. ACCUTANE [Suspect]
     Indication: PRODUCT USED FOR UNKNOWN INDICATION
     Route: 065
     Dates: start: 19840310, end: 19850503
  2. BAYER ASPIRIN [Concomitant]
  3. MOTRIN [Concomitant]

REACTIONS (5)
  - Colitis ulcerative [Unknown]
  - Inflammatory bowel disease [Unknown]
  - Blood triglycerides increased [Unknown]
  - Suicidal ideation [Unknown]
  - Depression [Unknown]
